FAERS Safety Report 22133970 (Version 1)
Quarter: 2023Q1

REPORT INFORMATION
  Report Type: Spontaneous
  Country: KR (occurrence: KR)
  Receive Date: 20230324
  Receipt Date: 20230324
  Transmission Date: 20230417
  Serious: Yes (Hospitalization, Other)
  Sender: FDA-Public Use
  Company Number: None

PATIENT
  Age: 37 Year
  Sex: Female

DRUGS (5)
  1. VALSARTAN [Suspect]
     Active Substance: VALSARTAN
     Indication: IgA nephropathy
  2. ALITRETINOIN [Concomitant]
     Active Substance: ALITRETINOIN
     Indication: Nail dystrophy
     Route: 048
  3. ALITRETINOIN [Concomitant]
     Active Substance: ALITRETINOIN
     Route: 048
  4. MESOGLYCAN [Concomitant]
     Indication: IgA nephropathy
  5. RETINOL [Concomitant]
     Active Substance: RETINOL
     Indication: Product used for unknown indication
     Route: 048

REACTIONS (1)
  - Intracranial pressure increased [Recovered/Resolved]
